FAERS Safety Report 9790291 (Version 1)
Quarter: 2013Q4

REPORT INFORMATION
  Report Type: Spontaneous
  Country: GB (occurrence: GB)
  Receive Date: 20131231
  Receipt Date: 20131231
  Transmission Date: 20140711
  Serious: Yes (Hospitalization)
  Sender: FDA-Public Use
  Company Number: GB-SA-2013SA133193

PATIENT
  Age: 68 Year
  Sex: Female

DRUGS (6)
  1. INDAPAMIDE [Suspect]
     Indication: HYPERTENSION
     Route: 048
     Dates: start: 20131021, end: 20131121
  2. PREDNISOLONE [Concomitant]
     Dosage: FREQUENCY: EVERY
  3. BETNOVATE [Concomitant]
     Dosage: FREQUENCY: EVERY
  4. CANDESARTAN [Concomitant]
     Dosage: FREQUENCY: EVERY
  5. LEVOTHYROXINE [Concomitant]
     Dosage: FREQUENCY: EVERY
  6. OMEPRAZOLE [Concomitant]
     Dosage: FREQUENCY: EVERY

REACTIONS (4)
  - Pemphigoid [Not Recovered/Not Resolved]
  - Blister [Not Recovered/Not Resolved]
  - Skin haemorrhage [Not Recovered/Not Resolved]
  - Erythema [Not Recovered/Not Resolved]
